FAERS Safety Report 6284203-X (Version None)
Quarter: 2009Q3

REPORT INFORMATION
  Report Type: 
  Country: None (occurrence: None)
  Receive Date: 20090723
  Receipt Date: 20090710
  Transmission Date: 20100115
  Serious: Yes (Other)
  Sender: FDA-Public Use
  Company Number: 2009S1005571

PATIENT
  Sex: Female

DRUGS (1)
  1. EZ PREP KIT [Suspect]
     Dates: start: 20060203, end: 20060203

REACTIONS (1)
  - BLOOD CREATININE INCREASED [None]
